FAERS Safety Report 15462009 (Version 1)
Quarter: 2018Q4

REPORT INFORMATION
  Report Type: Report from Study
  Country: None (occurrence: US)
  Receive Date: 20181003
  Receipt Date: 20181003
  Transmission Date: 20190204
  Serious: Yes (Other)
  Sender: FDA-Public Use
  Company Number: US-ABBVIE-18K-163-2436007-00

PATIENT
  Age: 75 Year
  Sex: Female

DRUGS (2)
  1. HUMIRA [Suspect]
     Active Substance: ADALIMUMAB
     Indication: RHEUMATOID ARTHRITIS
     Route: 058
     Dates: start: 2013, end: 20180531
  2. HUMIRA [Suspect]
     Active Substance: ADALIMUMAB
     Route: 058
     Dates: start: 20180913

REACTIONS (9)
  - Skin fissures [Unknown]
  - Pruritus [Recovered/Resolved]
  - Malignant melanoma in situ [Recovered/Resolved with Sequelae]
  - Skin haemorrhage [Unknown]
  - Pain [Unknown]
  - Onychomadesis [Not Recovered/Not Resolved]
  - Carpal tunnel syndrome [Unknown]
  - Ingrowing nail [Not Recovered/Not Resolved]
  - Rheumatoid arthritis [Recovering/Resolving]

NARRATIVE: CASE EVENT DATE: 2018
